FAERS Safety Report 7163605-3 (Version None)
Quarter: 2010Q4

REPORT INFORMATION
  Report Type: 
  Country: None (occurrence: None)
  Receive Date: 20101215
  Receipt Date: 20100513
  Transmission Date: 20110411
  Serious: Yes (Death)
  Sender: FDA-Public Use
  Company Number: PH-PFIZER INC-2010060660

PATIENT
  Age: 71 Year
  Sex: Male

DRUGS (4)
  1. LYRICA [Suspect]
     Indication: BREAST PAIN
     Dosage: 75 MG, 2X/DAY
     Route: 048
     Dates: start: 20100508, end: 20100508
  2. VENTOLIN NEBULES PF [Concomitant]
  3. CLUSIVOL [Concomitant]
  4. SODIUM ASCORBATE [Concomitant]

REACTIONS (1)
  - DEATH [None]
